FAERS Safety Report 12754278 (Version 1)
Quarter: 2016Q3

REPORT INFORMATION
  Report Type: Spontaneous
  Country: US (occurrence: US)
  Receive Date: 20160916
  Receipt Date: 20160916
  Transmission Date: 20161109
  Serious: No
  Sender: FDA-Public Use
  Company Number: US-ASTRAZENECA-2016SE53289

PATIENT
  Age: 71 Year
  Sex: Female

DRUGS (4)
  1. PRILOSEC OTC [Suspect]
     Active Substance: OMEPRAZOLE MAGNESIUM
     Route: 048
  2. PRILOSEC OTC [Suspect]
     Active Substance: OMEPRAZOLE MAGNESIUM
     Route: 048
  3. VITAMIN D [Concomitant]
     Active Substance: CHOLECALCIFEROL
  4. FISH OIL [Concomitant]
     Active Substance: FISH OIL

REACTIONS (10)
  - Hypoaesthesia [Not Recovered/Not Resolved]
  - Arthralgia [Not Recovered/Not Resolved]
  - Dizziness postural [Unknown]
  - Dyspnoea [Not Recovered/Not Resolved]
  - Dizziness [Unknown]
  - Muscular weakness [Not Recovered/Not Resolved]
  - Arthropathy [Not Recovered/Not Resolved]
  - Myalgia [Not Recovered/Not Resolved]
  - Lethargy [Not Recovered/Not Resolved]
  - Headache [Not Recovered/Not Resolved]

NARRATIVE: CASE EVENT DATE: 201604
